FAERS Safety Report 6691504-X (Version None)
Quarter: 2010Q2

REPORT INFORMATION
  Report Type: 
  Country: None (occurrence: None)
  Receive Date: 20100419
  Receipt Date: 20100407
  Transmission Date: 20101027
  Serious: Yes (Life-Threatening, Hospitalization)
  Sender: FDA-Public Use
  Company Number: S06-NLD-02883-01

PATIENT
  Age: 75 Year
  Sex: Female

DRUGS (4)
  1. LEXAPRO [Suspect]
     Indication: DEPRESSION
     Dosage: 20 MG (20 MG, ONCE A DAY), ORAL
     Route: 048
     Dates: start: 20060203, end: 20060614
  2. PANTOZOL (PANTOPRAZOLE SODIUM) (TABLETS) (PANTOPRAZOLE SODIUM) [Concomitant]
  3. SALBUTAMOL AER (SALBUTAMOL) (100 MICROGRAM) (SALBUTAMOL) [Concomitant]
  4. SERETIDE AEROSOL (25 MICROGRAM) [Concomitant]

REACTIONS (4)
  - CARDIAC ARREST [None]
  - CARDIAC FAILURE CONGESTIVE [None]
  - DYSPNOEA [None]
  - ELECTROCARDIOGRAM QT PROLONGED [None]
